FAERS Safety Report 8209762-9 (Version None)
Quarter: 2012Q1

REPORT INFORMATION
  Report Type: 
  Country: None (occurrence: None)
  Receive Date: 20120314
  Receipt Date: 20120305
  Transmission Date: 20120608
  Serious: Yes (Hospitalization, Disabling)
  Sender: FDA-Public Use
  Company Number: DE-FRI-1000024798

PATIENT
  Age: 77 Year
  Sex: Female
  Weight: 64 kg

DRUGS (9)
  1. FOSAMAX [Concomitant]
     Dosage: 10 MG
  2. NOVALGIN [Concomitant]
     Dosage: 30 DROPS PER DAY
     Route: 048
  3. CITALOPRAM HYDROBROMIDE [Suspect]
     Dosage: 20 MG
     Route: 048
     Dates: start: 20100301, end: 20110401
  4. HYDROCHLOROTHIAZIDE [Concomitant]
     Dosage: 25 MG
  5. CITALOPRAM HYDROBROMIDE [Suspect]
     Dosage: 10 MG
     Route: 048
     Dates: start: 20090501, end: 20090901
  6. PANTOPRAZOLE [Concomitant]
     Dosage: 20 MG
  7. OXYCODONE HCL [Concomitant]
     Dosage: 40 MG
  8. CITALOPRAM HYDROBROMIDE [Suspect]
     Dosage: 10 MG
     Route: 048
     Dates: start: 20091201, end: 20100301
  9. CITALOPRAM HYDROBROMIDE [Suspect]
     Indication: DEPRESSION
     Dosage: 20 MG
     Route: 048
     Dates: start: 20080301, end: 20090501

REACTIONS (13)
  - THORACIC VERTEBRAL FRACTURE [None]
  - BLOOD SODIUM DECREASED [None]
  - C-REACTIVE PROTEIN INCREASED [None]
  - HAEMATOCRIT DECREASED [None]
  - FEMUR FRACTURE [None]
  - PELVIC FRACTURE [None]
  - HAEMOGLOBIN DECREASED [None]
  - PUBIS FRACTURE [None]
  - WHITE BLOOD CELL COUNT DECREASED [None]
  - WHITE BLOOD CELLS URINE POSITIVE [None]
  - HYPOKALAEMIA [None]
  - FALL [None]
  - OSTEOPOROSIS [None]
